FAERS Safety Report 9362991 (Version 1)
Quarter: 2013Q2

REPORT INFORMATION
  Report Type: Spontaneous
  Country: IL (occurrence: None)
  Receive Date: 20130619
  Receipt Date: 20130619
  Transmission Date: 20140414
  Serious: Yes (Death)
  Sender: FDA-Public Use
  Company Number: 2013-2437

PATIENT
  Age: 49 Year
  Sex: Female

DRUGS (1)
  1. SOMATULINE SR (LANREOTIDE) (LANREOTIDE ACETATE) [Suspect]
     Indication: NEUROENDOCRINE TUMOUR
     Dosage: 120 (120 MG, 1 IN 28 )
     Dates: start: 201210

REACTIONS (2)
  - Neoplasm progression [None]
  - Neuroendocrine tumour [None]
